FAERS Safety Report 23458442 (Version 1)
Quarter: 2024Q1

REPORT INFORMATION
  Report Type: Spontaneous
  Country: US (occurrence: US)
  Receive Date: 20240130
  Receipt Date: 20240130
  Transmission Date: 20240410
  Serious: No
  Sender: FDA-Public Use
  Company Number: US-MYLANLABS-2024M1003172

PATIENT

DRUGS (1)
  1. ESTRADIOL TRANSDERMAL SYSTEM [Suspect]
     Active Substance: ESTRADIOL
     Indication: Menopausal symptoms
     Dosage: 0.05 PERCENT, (TWICE-WEEKLY)
     Route: 062

REACTIONS (9)
  - Alopecia [Unknown]
  - Arthralgia [Unknown]
  - Pruritus [Unknown]
  - Memory impairment [Unknown]
  - Insomnia [Unknown]
  - Anxiety [Unknown]
  - Hot flush [Unknown]
  - Product dosage form issue [Unknown]
  - Product adhesion issue [Unknown]
